FAERS Safety Report 5308082-X (Version None)
Quarter: 2007Q2

REPORT INFORMATION
  Report Type: 
  Country: None (occurrence: None)
  Receive Date: 20070426
  Receipt Date: 20070416
  Transmission Date: 20071010
  Serious: Yes (Other)
  Sender: FDA-Public Use
  Company Number: PHBS2007ES06736

PATIENT
  Age: 67 Year
  Sex: Male

DRUGS (1)
  1. FLUVASTATIN [Suspect]
     Indication: HYPERCHOLESTEROLAEMIA
     Route: 065

REACTIONS (11)
  - ALANINE AMINOTRANSFERASE INCREASED [None]
  - ANTI-THYROID ANTIBODY POSITIVE [None]
  - ANTINUCLEAR ANTIBODY POSITIVE [None]
  - ASPARTATE AMINOTRANSFERASE INCREASED [None]
  - AUTOIMMUNE HEPATITIS [None]
  - BLOOD ALKALINE PHOSPHATASE INCREASED [None]
  - ERYTHEMA [None]
  - GAMMA-GLUTAMYLTRANSFERASE INCREASED [None]
  - HLA MARKER STUDY [None]
  - PERIVASCULAR DERMATITIS [None]
  - TRANSAMINASES INCREASED [None]
